FAERS Safety Report 12639594 (Version 1)
Quarter: 2016Q3

REPORT INFORMATION
  Report Type: Spontaneous
  Country: US (occurrence: None)
  Receive Date: 20160809
  Receipt Date: 20160809
  Transmission Date: 20161109
  Serious: Yes (Death)
  Sender: FDA-Public Use
  Company Number: None

PATIENT
  Age: 43 Year
  Sex: Male

DRUGS (6)
  1. FLUOXETINE [Suspect]
     Active Substance: FLUOXETINE HYDROCHLORIDE
  2. TRAZODONE [Suspect]
     Active Substance: TRAZODONE HYDROCHLORIDE
  3. MEDICAL MARIJUANA [Suspect]
     Active Substance: CANNABIS SATIVA SUBSP. INDICA TOP
  4. MORPHINE [Suspect]
     Active Substance: MORPHINE
  5. GABAPENTIN. [Suspect]
     Active Substance: GABAPENTIN
  6. MITRAGYNINE [Suspect]
     Active Substance: MITRAGYNINE

REACTIONS (11)
  - Congestive cardiomyopathy [None]
  - Arteriosclerosis coronary artery [None]
  - Pulmonary infarction [None]
  - Unresponsive to stimuli [None]
  - Cough [None]
  - Deep vein thrombosis [None]
  - Pneumonia [None]
  - Nephrosclerosis [None]
  - Hepatic steatosis [None]
  - Pulmonary embolism [None]
  - Toxicity to various agents [None]

NARRATIVE: CASE EVENT DATE: 20150616
